FAERS Safety Report 21341693 (Version 4)
Quarter: 2024Q3

REPORT INFORMATION
  Report Type: Other
  Country: CO (occurrence: CO)
  Receive Date: 20220916
  Receipt Date: 20240725
  Transmission Date: 20241017
  Serious: Yes (Other)
  Sender: TOLMAR
  Company Number: CO-TOLMAR, INC.-22CO036512

PATIENT
  Age: 83 Year
  Sex: Male

DRUGS (4)
  1. ELIGARD [Suspect]
     Active Substance: LEUPROLIDE ACETATE
     Indication: Prostate cancer
     Dosage: 45 MILLIGRAM, Q 6 MONTH
     Route: 058
     Dates: start: 20200227, end: 20210903
  2. ELIGARD [Suspect]
     Active Substance: LEUPROLIDE ACETATE
     Dosage: 45 MILLIGRAM, Q 6 MONTH
     Route: 058
     Dates: start: 202209
  3. LOSARTAN [Concomitant]
     Active Substance: LOSARTAN
     Indication: Product used for unknown indication
  4. ATORVASTATIN [Concomitant]
     Active Substance: ATORVASTATIN
     Indication: Product used for unknown indication

REACTIONS (6)
  - Neoplasm [Unknown]
  - Prostatic specific antigen increased [Recovering/Resolving]
  - Culture urine positive [Not Recovered/Not Resolved]
  - Therapy cessation [Unknown]
  - Therapy interrupted [Not Recovered/Not Resolved]
  - Insurance issue [Not Recovered/Not Resolved]

NARRATIVE: CASE EVENT DATE: 20230310
